FAERS Safety Report 24569459 (Version 2)
Quarter: 2024Q4

REPORT INFORMATION
  Report Type: Report from Study
  Country: ZA (occurrence: ZA)
  Receive Date: 20241031
  Receipt Date: 20241105
  Transmission Date: 20250115
  Serious: Yes (Other)
  Sender: NOVARTIS
  Company Number: ZA-002147023-NVSC2024ZA209237

PATIENT
  Age: 32 Year
  Sex: Female

DRUGS (4)
  1. COSENTYX [Suspect]
     Active Substance: SECUKINUMAB
     Indication: Spondyloarthropathy
     Dosage: 150 MG, OTHER (150MG AT WEEK 1,2,3,4 THEN MONTHLY THEREAFTER)
     Route: 065
     Dates: start: 20240507
  2. COSENTYX [Suspect]
     Active Substance: SECUKINUMAB
     Dosage: 300 MG, QMO
     Route: 058
     Dates: start: 20241017
  3. COSENTYX [Suspect]
     Active Substance: SECUKINUMAB
     Dosage: 150 MG, QMO
     Route: 058
  4. METHOTREXATE [Concomitant]
     Active Substance: METHOTREXATE
     Indication: Product used for unknown indication
     Dosage: 25 MG, QW (DMARDS)
     Route: 065
     Dates: start: 202203

REACTIONS (3)
  - Back pain [Unknown]
  - Arthritis [Unknown]
  - Enthesopathy [Unknown]

NARRATIVE: CASE EVENT DATE: 20240507
